FAERS Safety Report 23494216 (Version 2)
Quarter: 2024Q1

REPORT INFORMATION
  Report Type: Spontaneous
  Country: CN (occurrence: CN)
  Receive Date: 20240207
  Receipt Date: 20240209
  Transmission Date: 20240410
  Serious: Yes (Other)
  Sender: FDA-Public Use
  Company Number: CN-002147023-NVSC2024CN025684

PATIENT
  Age: 55 Year
  Sex: Male
  Weight: 60 kg

DRUGS (1)
  1. CARBAMAZEPINE [Suspect]
     Active Substance: CARBAMAZEPINE
     Indication: Epilepsy
     Dosage: 0.100 G, TID
     Route: 048
     Dates: start: 20240102, end: 20240105

REACTIONS (4)
  - Seizure [Unknown]
  - Anaemia [Recovering/Resolving]
  - Full blood count decreased [Unknown]
  - Dyspnoea [Unknown]

NARRATIVE: CASE EVENT DATE: 20240120
